FAERS Safety Report 9340449 (Version 1)
Quarter: 2013Q2

REPORT INFORMATION
  Report Type: Spontaneous
  Country: US (occurrence: US)
  Receive Date: 20130610
  Receipt Date: 20130610
  Transmission Date: 20140414
  Serious: No
  Sender: FDA-Public Use
  Company Number: US-BAYER-2013-061353

PATIENT
  Age: 49 Year
  Sex: Male

DRUGS (2)
  1. GADAVIST [Suspect]
     Indication: NUCLEAR MAGNETIC RESONANCE IMAGING
     Dosage: 10 ML, 1 MMOL GADOBUTROL /ML
     Route: 042
     Dates: start: 20130329, end: 20130329
  2. GADAVIST [Suspect]
     Indication: INTERVERTEBRAL DISCITIS
     Dosage: 5 ML, 1 MMOL GADOBUTROL /ML
     Route: 042
     Dates: start: 20130508, end: 20130508

REACTIONS (2)
  - Vomiting [Recovered/Resolved]
  - Vomiting [Recovered/Resolved]
